FAERS Safety Report 6147773-8 (Version None)
Quarter: 2009Q2

REPORT INFORMATION
  Report Type: 
  Country: None (occurrence: None)
  Receive Date: 20090408
  Receipt Date: 20090331
  Transmission Date: 20091009
  Serious: Yes (Other)
  Sender: FDA-Public Use
  Company Number: US-AVENTIS-200912703US

PATIENT
  Age: 52 Year
  Sex: Female

DRUGS (9)
  1. LANTUS [Suspect]
     Route: 058
     Dates: start: 20040101
  2. LANTUS [Suspect]
     Dates: start: 20090101, end: 20090331
  3. XANAX [Concomitant]
  4. DESYREL [Concomitant]
  5. GEMFIBROZIL [Concomitant]
     Dosage: DOSE: UNK
  6. ATENOLOL [Concomitant]
  7. PANCREASE                          /00150201/ [Concomitant]
     Dosage: DOSE: 2 TABLETS AFTER EACH MEAL
  8. MORPHINE [Concomitant]
     Dosage: DOSE: PRN
  9. METHADONE [Concomitant]

REACTIONS (3)
  - BLOOD GLUCOSE INCREASED [None]
  - CONDITION AGGRAVATED [None]
  - PANCREATITIS CHRONIC [None]
